FAERS Safety Report 25031766 (Version 1)
Quarter: 2025Q1

REPORT INFORMATION
  Report Type: Spontaneous
  Country: US (occurrence: None)
  Receive Date: 20250301
  Receipt Date: 20250301
  Transmission Date: 20250409
  Serious: Yes (Hospitalization)
  Sender: FDA-CTU
  Company Number: None

PATIENT
  Age: 57 Year
  Sex: Female
  Weight: 67.5 kg

DRUGS (1)
  1. ZEPBOUND [Suspect]
     Active Substance: TIRZEPATIDE
     Indication: Weight decreased
     Route: 030
     Dates: start: 20240501, end: 20250110

REACTIONS (2)
  - Spinal cord neoplasm [None]
  - Tumour haemorrhage [None]

NARRATIVE: CASE EVENT DATE: 20250111
